FAERS Safety Report 17740290 (Version 2)
Quarter: 2020Q2

REPORT INFORMATION
  Report Type: Spontaneous
  Country: US (occurrence: US)
  Receive Date: 20200504
  Receipt Date: 20200505
  Transmission Date: 20200714
  Serious: No
  Sender: FDA-Public Use
  Company Number: US-PFIZER INC-2020177204

PATIENT
  Age: 89 Year
  Sex: Male

DRUGS (2)
  1. KEYTRUDA [Concomitant]
     Active Substance: PEMBROLIZUMAB
     Dosage: UNK
  2. INLYTA [Suspect]
     Active Substance: AXITINIB
     Indication: RENAL CANCER
     Dosage: 1 DF

REACTIONS (7)
  - Haematuria [Unknown]
  - Neoplasm progression [Unknown]
  - Malaise [Unknown]
  - Agitation [Unknown]
  - Abdominal pain upper [Unknown]
  - Confusional state [Unknown]
  - Nausea [Unknown]
